FAERS Safety Report 5842821-4 (Version None)
Quarter: 2008Q3

REPORT INFORMATION
  Report Type: 
  Country: None (occurrence: None)
  Receive Date: 20080811
  Receipt Date: 20080804
  Transmission Date: 20090109
  Serious: Yes (Other)
  Sender: FDA-Public Use
  Company Number: 2008SP015880

PATIENT
  Age: 51 Year
  Sex: Female

DRUGS (1)
  1. TEMODAR [Suspect]
     Indication: OLIGODENDROGLIOMA
     Dosage: PO
     Route: 048

REACTIONS (1)
  - IDIOPATHIC THROMBOCYTOPENIC PURPURA [None]
